FAERS Safety Report 20826272 (Version 1)
Quarter: 2022Q2

REPORT INFORMATION
  Report Type: Report from Study
  Country: US (occurrence: US)
  Receive Date: 20220513
  Receipt Date: 20220513
  Transmission Date: 20220721
  Serious: Yes (Other)
  Sender: FDA-Public Use
  Company Number: US-PHARMACOVIGILANCE-US-KAD-22-00284

PATIENT
  Age: 55 Year
  Sex: Male

DRUGS (1)
  1. REZUROCK [Suspect]
     Active Substance: BELUMOSUDIL
     Indication: Product used for unknown indication
     Dosage: 200 MILLIGRAM
     Route: 048
     Dates: start: 20220214, end: 20220214

REACTIONS (1)
  - Dysphagia [Not Recovered/Not Resolved]

NARRATIVE: CASE EVENT DATE: 20220214
